FAERS Safety Report 5125009-4 (Version None)
Quarter: 2006Q4

REPORT INFORMATION
  Report Type: 
  Country: None (occurrence: None)
  Receive Date: 20061011
  Receipt Date: 20061005
  Transmission Date: 20070319
  Serious: Yes (Other)
  Sender: FDA-Public Use
  Company Number: GB-GLAXOSMITHKLINE-B0441536A

PATIENT
  Age: 65 Year
  Sex: Male

DRUGS (9)
  1. ZYBAN [Suspect]
     Indication: DRUG USE FOR UNKNOWN INDICATION
     Dosage: 150MG UNKNOWN
     Route: 048
     Dates: start: 20060914, end: 20060914
  2. ATORVASTATIN CALCIUM [Concomitant]
     Route: 048
     Dates: start: 20030411
  3. BENDROFLUMETHIAZIDE [Concomitant]
     Route: 048
     Dates: start: 20040630
  4. METFORMIN HCL [Concomitant]
     Route: 048
     Dates: start: 19960516
  5. NICORANDIL [Concomitant]
     Route: 048
     Dates: start: 20030801
  6. OLMESARTAN MEDOXOMIL [Concomitant]
     Route: 048
     Dates: start: 20040714
  7. ACETAMINOPHEN [Concomitant]
     Route: 048
     Dates: start: 19951215
  8. SPIRIVA [Concomitant]
     Route: 055
     Dates: start: 20040301
  9. WARFARIN SODIUM [Concomitant]
     Route: 048
     Dates: start: 19951215

REACTIONS (6)
  - DIZZINESS [None]
  - FEELING HOT [None]
  - HEAT RASH [None]
  - NAUSEA [None]
  - OEDEMA MUCOSAL [None]
  - SWELLING FACE [None]
